FAERS Safety Report 9585989 (Version 1)
Quarter: 2013Q4

REPORT INFORMATION
  Report Type: Spontaneous
  Country: US (occurrence: US)
  Receive Date: 20131003
  Receipt Date: 20131003
  Transmission Date: 20140711
  Serious: No
  Sender: FDA-Public Use
  Company Number: US-PFIZER INC-2013280123

PATIENT
  Age: 53 Year
  Sex: Female

DRUGS (1)
  1. AROMASIN [Suspect]
     Indication: BREAST CANCER METASTATIC
     Dosage: UNK

REACTIONS (2)
  - Disease progression [Unknown]
  - Breast cancer [Unknown]
